FAERS Safety Report 7785206-6 (Version None)
Quarter: 2011Q3

REPORT INFORMATION
  Report Type: 
  Country: None (occurrence: None)
  Receive Date: 20110929
  Receipt Date: 20110916
  Transmission Date: 20111222
  Serious: Yes (Hospitalization)
  Sender: FDA-Public Use
  Company Number: CO-SP-2011-08757

PATIENT
  Sex: Male

DRUGS (1)
  1. TICE BCG [Suspect]
     Indication: PRODUCT USED FOR UNKNOWN INDICATION
     Dosage: NOT REPORTED
     Route: 043
     Dates: start: 20110819, end: 20110819

REACTIONS (2)
  - HAEMATURIA [None]
  - URINARY BLADDER HAEMORRHAGE [None]
